FAERS Safety Report 10099536 (Version 2)
Quarter: 2014Q2

REPORT INFORMATION
  Report Type: Spontaneous
  Country: NL (occurrence: NL)
  Receive Date: 20140423
  Receipt Date: 20140423
  Transmission Date: 20141212
  Serious: Yes (Death, Other)
  Sender: FDA-Public Use
  Company Number: NL-JNJFOC-20140110546

PATIENT
  Age: 32 Year
  Sex: Female
  Weight: 44 kg

DRUGS (6)
  1. REMICADE [Suspect]
     Indication: CROHN^S DISEASE
     Dosage: STRENGTH 500 (UNITS NOT SPECFIED)
     Route: 042
     Dates: start: 20110901
  2. REMICADE [Suspect]
     Indication: CROHN^S DISEASE
     Route: 042
     Dates: start: 201308, end: 20130813
  3. ADALIMUMAB [Suspect]
     Indication: CROHN^S DISEASE
     Dosage: 40 (UNITS NOT SPECIFIED)
     Route: 058
     Dates: start: 20131007, end: 20131118
  4. PURI-NETHOL [Suspect]
     Indication: CROHN^S DISEASE
     Route: 048
     Dates: start: 20130905, end: 20131118
  5. PANTOZOL [Concomitant]
     Dosage: 20
     Route: 065
  6. CALCICHEW-D3 [Concomitant]
     Dosage: 500/400
     Route: 065

REACTIONS (6)
  - T-cell lymphoma [Fatal]
  - Sepsis [Fatal]
  - Post transplant lymphoproliferative disorder [Unknown]
  - Antibody test positive [Unknown]
  - Drug level below therapeutic [Unknown]
  - Malaise [Unknown]
